FAERS Safety Report 20174875 (Version 2)
Quarter: 2022Q3

REPORT INFORMATION
  Report Type: Spontaneous
  Country: BR (occurrence: BR)
  Receive Date: 20211213
  Receipt Date: 20220921
  Transmission Date: 20221026
  Serious: Yes (Death, Other)
  Sender: FDA-Public Use
  Company Number: BR-ASTELLAS-2021US047628

PATIENT
  Age: 20 Year
  Sex: Male

DRUGS (2)
  1. XOSPATA [Suspect]
     Active Substance: GILTERITINIB
     Indication: Product used for unknown indication
     Dosage: UNK UNK, UNKNOWN FREQ. (PRE-TRANSPLANTATION FOR APPROXIMATELY 4 MONTHS)
     Route: 065
  2. XOSPATA [Suspect]
     Active Substance: GILTERITINIB
     Dosage: UNK UNK, UNKNOWN FREQ. (RESTARTED AFTER TRANSPLANT)
     Route: 065

REACTIONS (3)
  - Death [Fatal]
  - Haemolytic anaemia [Unknown]
  - Product availability issue [Unknown]

NARRATIVE: CASE EVENT DATE: 20220908
